FAERS Safety Report 5964574-1 (Version None)
Quarter: 2008Q4

REPORT INFORMATION
  Report Type: 
  Country: None (occurrence: None)
  Receive Date: 20081122
  Receipt Date: 20081122
  Transmission Date: 20090506
  Serious: No
  Sender: FDA-Public Use
  Company Number: None

PATIENT
  Sex: Female
  Weight: 35.8342 kg

DRUGS (1)
  1. CIPROFLOXACIN HCL [Suspect]
     Indication: PNEUMONIA
     Dosage: 500 MG 20 PILLS MAY 27 TO JUNE 3
     Dates: start: 20080527, end: 20080603

REACTIONS (3)
  - MUSCULOSKELETAL PAIN [None]
  - PAIN IN EXTREMITY [None]
  - PARAESTHESIA [None]
